FAERS Safety Report 4308730-7 (Version None)
Quarter: 2004Q1

REPORT INFORMATION
  Report Type: 
  Country: None (occurrence: None)
  Receive Date: 20040227
  Receipt Date: 20040217
  Transmission Date: 20041129
  Serious: Yes (Death, Hospitalization)
  Sender: FDA-Public Use
  Company Number: US-JNJFOC-20031101154

PATIENT
  Age: 49 Year
  Sex: Male

DRUGS (2)
  1. REMICADE [Suspect]
     Indication: PYODERMA GANGRENOSUM
     Dosage: 5 MG/KG, INTRAVENOUS
     Route: 042
     Dates: start: 20031001
  2. PREDNISONE [Concomitant]

REACTIONS (3)
  - NAUSEA [None]
  - SEPTIC SHOCK [None]
  - VOMITING [None]
